FAERS Safety Report 14022462 (Version 3)
Quarter: 2017Q4

REPORT INFORMATION
  Report Type: Spontaneous
  Country: US (occurrence: US)
  Receive Date: 20170929
  Receipt Date: 20171018
  Transmission Date: 20180321
  Serious: Yes (Hospitalization, Other)
  Sender: FDA-Public Use
  Company Number: US-RECORDATI RARE DISEASES-US-R13005-17-00220

PATIENT
  Sex: Female

DRUGS (1)
  1. PANHEMATIN [Suspect]
     Active Substance: HEMIN
     Indication: PORPHYRIA ACUTE
     Route: 042
     Dates: start: 20170917, end: 20170919

REACTIONS (3)
  - Administration site necrosis [Recovered/Resolved]
  - Deep vein thrombosis [Unknown]
  - Phlebitis [Recovered/Resolved]

NARRATIVE: CASE EVENT DATE: 20170919
